FAERS Safety Report 6544043-0 (Version None)
Quarter: 2010Q1

REPORT INFORMATION
  Report Type: 
  Country: None (occurrence: None)
  Receive Date: 20100120
  Receipt Date: 20100112
  Transmission Date: 20100710
  Serious: No
  Sender: FDA-Public Use
  Company Number: US-B.I. PHARMACEUTICALS,INC./RIDGEFIELD-2009-BP-14133BP

PATIENT
  Age: 64 Year
  Sex: Female

DRUGS (11)
  1. AGGRENOX [Suspect]
     Indication: ISCHAEMIC CEREBRAL INFARCTION
     Dates: end: 20091126
  2. FUROSEMIDE [Concomitant]
     Route: 048
  3. OMEPRAZOLE [Concomitant]
     Dosage: 20 MG
     Route: 048
  4. AMBIEN [Concomitant]
     Route: 048
  5. NITROGLYCERIN [Concomitant]
     Route: 060
  6. PREMARIN [Concomitant]
     Route: 048
  7. FOSAMAX [Concomitant]
     Route: 048
  8. METOPROLOL [Concomitant]
     Dosage: 50 MG
     Route: 048
  9. VERAPAMIL [Concomitant]
     Dosage: 240 MG
     Route: 048
  10. ASPIRIN [Concomitant]
     Dosage: 650 MG
     Route: 048
  11. TEVETEN [Concomitant]
     Dosage: 600 MG
     Route: 048

REACTIONS (10)
  - CHEST PAIN [None]
  - CHILLS [None]
  - DIZZINESS [None]
  - HEADACHE [None]
  - HYPERHIDROSIS [None]
  - HYPOAESTHESIA [None]
  - PAIN IN JAW [None]
  - PALPITATIONS [None]
  - VISION BLURRED [None]
  - VOMITING [None]
